FAERS Safety Report 7319468-6 (Version None)
Quarter: 2011Q1

REPORT INFORMATION
  Report Type: 
  Country: None (occurrence: None)
  Receive Date: 20110228
  Receipt Date: 20100406
  Transmission Date: 20110831
  Serious: No
  Sender: FDA-Public Use
  Company Number: A0853716A

PATIENT
  Age: 35 Year
  Sex: Male

DRUGS (3)
  1. WELLBUTRIN [Concomitant]
     Route: 048
  2. LAMICTAL [Suspect]
     Dosage: 150TAB PER DAY
     Route: 048
     Dates: start: 20100322, end: 20100406
  3. LAMICTAL [Suspect]
     Dosage: 150MG PER DAY
     Route: 048
     Dates: start: 20100315, end: 20100321

REACTIONS (1)
  - CHEILITIS [None]
